FAERS Safety Report 5777629-1 (Version None)
Quarter: 2008Q2

REPORT INFORMATION
  Report Type: 
  Country: None (occurrence: None)
  Receive Date: 20080618
  Receipt Date: 20080612
  Transmission Date: 20081010
  Serious: Yes (Hospitalization, Other)
  Sender: FDA-Public Use
  Company Number: JP-PFIZER INC-2008035711

PATIENT
  Sex: Female

DRUGS (3)
  1. SOLANAX [Suspect]
     Route: 048
  2. NORVASC [Suspect]
     Indication: BLOOD PRESSURE
     Dosage: DAILY DOSE:2.5MG
     Route: 048
  3. LENDORMIN [Concomitant]
     Indication: ABDOMINAL PAIN
     Route: 048

REACTIONS (6)
  - BLOOD PRESSURE INCREASED [None]
  - DIZZINESS [None]
  - HEADACHE [None]
  - INJURY [None]
  - INSOMNIA [None]
  - RASH [None]
